FAERS Safety Report 9525967 (Version 1)
Quarter: 2013Q3

REPORT INFORMATION
  Report Type: Spontaneous
  Country: US (occurrence: US)
  Receive Date: 20130916
  Receipt Date: 20130916
  Transmission Date: 20140515
  Serious: No
  Sender: FDA-Public Use
  Company Number: US-BIOGENIDEC-2013BI087060

PATIENT
  Age: 49 Year
  Sex: Male

DRUGS (1)
  1. TYSABRI [Suspect]
     Indication: PRODUCT USED FOR UNKNOWN INDICATION
     Route: 042

REACTIONS (6)
  - Brain injury [Unknown]
  - Balance disorder [Unknown]
  - Hearing impaired [Unknown]
  - Hypoaesthesia [Unknown]
  - Muscle twitching [Unknown]
  - Multiple sclerosis relapse [Unknown]
